FAERS Safety Report 5398830-5 (Version None)
Quarter: 2007Q3

REPORT INFORMATION
  Report Type: 
  Country: None (occurrence: None)
  Receive Date: 20070725
  Receipt Date: 20070725
  Transmission Date: 20080115
  Serious: Yes (Life-Threatening, Hospitalization, Disabling)
  Sender: FDA-Public Use
  Company Number: None

PATIENT
  Sex: Female
  Weight: 96.1626 kg

DRUGS (1)
  1. CYPHER SIROLIMUS-ELUTING CORONARY STENT RX CXS23350 [Suspect]
     Indication: CORONARY ARTERY OCCLUSION
     Dosage: RX CXS23350
     Dates: start: 20051014

REACTIONS (2)
  - DRUG HYPERSENSITIVITY [None]
  - POST PROCEDURAL COMPLICATION [None]
